FAERS Safety Report 5471123-3 (Version None)
Quarter: 2007Q3

REPORT INFORMATION
  Report Type: 
  Country: None (occurrence: None)
  Receive Date: 20070925
  Receipt Date: 20070911
  Transmission Date: 20080115
  Serious: Yes (Hospitalization)
  Sender: FDA-Public Use
  Company Number: 2007BI017069

PATIENT
  Age: 62 Year
  Sex: Female

DRUGS (7)
  1. NATALIZUMAB [Suspect]
     Indication: MULTIPLE SCLEROSIS
     Dosage: 300 MG;QM;IV
     Route: 042
     Dates: start: 20070123, end: 20070611
  2. LUMINGAN [Concomitant]
  3. LISINOPRIL [Concomitant]
  4. GABAPENTIN [Concomitant]
  5. TAGRETOL [Concomitant]
  6. CRESTOR [Concomitant]
  7. NEURONTIN [Concomitant]

REACTIONS (9)
  - CONVULSION [None]
  - DEEP VEIN THROMBOSIS [None]
  - GASTROINTESTINAL HAEMORRHAGE [None]
  - MULTIPLE SCLEROSIS RELAPSE [None]
  - MYELITIS TRANSVERSE [None]
  - PROCTITIS [None]
  - PULMONARY EMBOLISM [None]
  - SALMONELLA BACTERAEMIA [None]
  - SEPSIS [None]
